FAERS Safety Report 20899940 (Version 1)
Quarter: 2022Q2

REPORT INFORMATION
  Report Type: Spontaneous
  Country: DE (occurrence: DE)
  Receive Date: 20220601
  Receipt Date: 20220601
  Transmission Date: 20220721
  Serious: Yes (Other)
  Sender: FDA-Public Use
  Company Number: None

PATIENT
  Age: 81 Year
  Sex: Male

DRUGS (7)
  1. TORSEMIDE [Concomitant]
     Active Substance: TORSEMIDE
     Dosage: FOR MORE THAN 2 YEARS
  2. DONEPEZIL [Interacting]
     Active Substance: DONEPEZIL
     Dates: start: 202201
  3. METFORMIN [Concomitant]
     Active Substance: METFORMIN HYDROCHLORIDE
     Dosage: FOR MORE THAN 2 YEARS
  4. JANUVIA [Concomitant]
     Active Substance: SITAGLIPTIN PHOSPHATE
     Dosage: FOR MORE THAN 2 YEARS
  5. INSULIN GLARGINE [Concomitant]
     Active Substance: INSULIN GLARGINE
     Dosage: FOR MORE THAN 2 YEARS
  6. Atorvastatin 60mg [Concomitant]
     Dosage: STATINS FOR MORE THAN 2 YEARS
  7. CETIRIZINE HYDROCHLORIDE [Interacting]
     Active Substance: CETIRIZINE HYDROCHLORIDE
     Indication: Hypersensitivity

REACTIONS (3)
  - Confusional state [Recovered/Resolved]
  - Dementia [Recovered/Resolved]
  - Drug interaction [Recovered/Resolved]

NARRATIVE: CASE EVENT DATE: 20220201
